FAERS Safety Report 5209111-4 (Version None)
Quarter: 2007Q1

REPORT INFORMATION
  Report Type: 
  Country: None (occurrence: None)
  Receive Date: 20070116
  Receipt Date: 20070109
  Transmission Date: 20070707
  Serious: Yes (Death, Hospitalization)
  Sender: FDA-Public Use
  Company Number: US-AVENTIS-200618655US

PATIENT
  Sex: Female
  Weight: 123 kg

DRUGS (6)
  1. LANTUS [Suspect]
     Dates: start: 20060601
  2. NOVOLOG [Concomitant]
     Dosage: DOSE: SLIDING SCALE
  3. METFORMIN [Concomitant]
     Dosage: DOSE: UNKNOWN
  4. AVAPRO [Concomitant]
     Dosage: DOSE: UNKNOWN
  5. ENALAPRIL MALEATE [Concomitant]
     Dosage: DOSE: UNKNOWN
  6. ZOCOR [Concomitant]
     Dosage: DOSE: UNK

REACTIONS (6)
  - BLOOD GLUCOSE DECREASED [None]
  - DYSGEUSIA [None]
  - FEELING ABNORMAL [None]
  - HEPATIC NEOPLASM MALIGNANT [None]
  - WEIGHT DECREASED [None]
  - YELLOW SKIN [None]
